FAERS Safety Report 8060242-3 (Version None)
Quarter: 2012Q1

REPORT INFORMATION
  Report Type: 
  Country: None (occurrence: None)
  Receive Date: 20120119
  Receipt Date: 20120119
  Transmission Date: 20120608
  Serious: Yes (Hospitalization)
  Sender: FDA-Public Use
  Company Number: None

PATIENT
  Age: 91 Year
  Sex: Male
  Weight: 75.1 kg

DRUGS (13)
  1. FINASTERIDE [Concomitant]
  2. REFRESH [Concomitant]
  3. LEVOTHYROXINE SODIUM [Concomitant]
  4. CA + VIT D [Concomitant]
  5. CELEBREX [Concomitant]
  6. TAMSULOSIN HCL [Concomitant]
  7. METFORMIN HCL [Concomitant]
  8. AVODART [Concomitant]
  9. AZITHROMYCIN [Suspect]
     Indication: NASOPHARYNGITIS
     Dosage: PO RECENT
     Route: 048
  10. AZITHROMYCIN [Suspect]
     Indication: COUGH
     Dosage: PO RECENT
     Route: 048
  11. HYDROCODONE/ AP [Concomitant]
  12. COUMADIN [Suspect]
     Indication: ATRIAL FIBRILLATION
     Dosage: 2MG / 4 MG   MF/ SSTWTH  PO  CHRONIC
     Route: 048
  13. DIGOXIN [Concomitant]

REACTIONS (3)
  - DRUG INTERACTION [None]
  - PNEUMONIA [None]
  - INTERNATIONAL NORMALISED RATIO INCREASED [None]
